FAERS Safety Report 5903256-9 (Version None)
Quarter: 2008Q3

REPORT INFORMATION
  Report Type: 
  Country: None (occurrence: None)
  Receive Date: 20080926
  Receipt Date: 20080916
  Transmission Date: 20090109
  Serious: Yes (Hospitalization)
  Sender: FDA-Public Use
  Company Number: GXKR2008CA08957

PATIENT
  Age: 79 Year
  Sex: Male
  Weight: 61 kg

DRUGS (21)
  1. NITROGLYCERIN [Suspect]
     Indication: BLOOD PRESSURE INCREASED
     Dosage: 560 MG TOTAL INTRAVENOUS
     Route: 042
     Dates: start: 20080825, end: 20080825
  2. PHENYLEPHRINE HCL INJ USP (NGX) (PHENYLEPHRINE) UNKNOWN [Suspect]
     Indication: HYPOTENSION
     Dosage: 560 MG TOTAL INTRAVENOUS
     Route: 042
     Dates: start: 20080825, end: 20080825
  3. PROTAMINE SULFATE [Suspect]
     Indication: HEPARIN NEUTRALISATION THERAPY
     Dosage: 400 MG UNK INTRAVENOUS
     Route: 042
     Dates: start: 20080825, end: 20080825
  4. TRANEXAMIC ACID INJ BP (NGX) (TRANEXAMIC ACID) UNKNOWN [Suspect]
     Indication: HAEMORRHAGE PROPHYLAXIS
     Dosage: 8 G UNK INTRAVENOUS
     Route: 042
     Dates: start: 20080825, end: 20080825
  5. MAGNESIUM SULFATE [Suspect]
     Indication: ELECTROLYTE SUBSTITUTION THERAPY
     Dosage: 5 G UNK INTRAVENOUS
     Route: 042
     Dates: start: 20080825, end: 20080825
  6. HEPARIN [Suspect]
     Indication: ANTICOAGULANT THERAPY
     Dosage: 35000 IU/DAY INTRAVENOUS
     Route: 042
     Dates: start: 20080825, end: 20080825
  7. BACTITRACIN (BACITRACIN) [Concomitant]
  8. FENTANYL-100 [Concomitant]
  9. MANNITOL [Concomitant]
  10. VOLUVEN (HETASTARCH) UNKNOWN [Concomitant]
  11. PANCURON (PANCURONIUM BROMIDE) UNKNOWN [Concomitant]
  12. MIDAZOLAM HCL [Concomitant]
  13. ROCURONIUM (ROCURONIUM) UNKNOWN [Concomitant]
  14. CALCIUM CHLORIDE [Concomitant]
  15. MORPHINE [Concomitant]
  16. SEVOFLURAMINE (SEVOFLURAMINE) [Concomitant]
  17. CEFAZOLIN (CEFAZOLIN) UNKNOWN [Concomitant]
  18. PROTAMINE SULFATE [Suspect]
  19. PROTAMINE SULFATE [Suspect]
  20. MAGNESIUM SULFATE [Suspect]
  21. TRANEXAMIC ACID INJ BP (NGX) (TRANEXAMIC ACID) UNKNOWN [Suspect]

REACTIONS (1)
  - GRAND MAL CONVULSION [None]
